FAERS Safety Report 15067972 (Version 1)
Quarter: 2018Q2

REPORT INFORMATION
  Report Type: Spontaneous
  Country: US (occurrence: US)
  Receive Date: 20180626
  Receipt Date: 20180626
  Transmission Date: 20180711
  Serious: No
  Sender: FDA-Public Use
  Company Number: US-PFIZER INC-2018257955

PATIENT
  Age: 61 Year
  Sex: Male
  Weight: 99 kg

DRUGS (4)
  1. CLONAZEPAM. [Concomitant]
     Active Substance: CLONAZEPAM
     Indication: ANXIETY
     Dosage: 1 MG, AS NEEDED; 1MG TABLET BY MOUTH, ONCE A DAY, AS NEEDED
     Route: 048
     Dates: start: 2014
  2. VIAGRA [Suspect]
     Active Substance: SILDENAFIL CITRATE
     Indication: BLOOD TESTOSTERONE DECREASED
     Dosage: 100 MG, AS NEEDED
     Route: 048
  3. SEROQUEL [Concomitant]
     Active Substance: QUETIAPINE FUMARATE
     Indication: FLASHBACK
     Dosage: 100 MG, AS NEEDED; 100MG TABLET BY MOUTH, EVERY NIGHT, AS NEEDED
     Route: 048
     Dates: start: 2015
  4. LUMIGAN [Concomitant]
     Active Substance: BIMATOPROST
     Indication: VISUAL IMPAIRMENT
     Dosage: 1 DF, 1X/DAY; 1 DROP IN LEFT EYE, EACH NIGHT
     Route: 031
     Dates: start: 2017

REACTIONS (3)
  - Drug ineffective for unapproved indication [Not Recovered/Not Resolved]
  - Poor quality drug administered [Unknown]
  - Product physical issue [Unknown]

NARRATIVE: CASE EVENT DATE: 201805
